FAERS Safety Report 4860784-5 (Version None)
Quarter: 2005Q4

REPORT INFORMATION
  Report Type: 
  Country: None (occurrence: None)
  Receive Date: 20051216
  Receipt Date: 20051216
  Transmission Date: 20060501
  Serious: No
  Sender: FDA-Public Use
  Company Number: None

PATIENT
  Age: 57 Year
  Sex: Female

DRUGS (16)
  1. CLOZAPINE [Suspect]
     Dosage: 600 MG/D IN DIVIDED DOSES
  2. ARIPIPRAZOLE [Concomitant]
  3. HEPARIN [Concomitant]
  4. GEMFIBROZIL [Concomitant]
  5. FUROSEMIDE [Concomitant]
  6. ESCITALOPRAM OXALATE [Concomitant]
  7. ERGOCALCIFEROL [Concomitant]
  8. DIGOXIN [Concomitant]
  9. PIPERACILLIN/TAZOBACTAM [Concomitant]
  10. PANTOPRAZOLE [Concomitant]
  11. NAFCILLIN [Concomitant]
  12. VANCOMYCIN [Concomitant]
  13. DEXAMETHASONE [Concomitant]
  14. SODIUM BICARBONATE [Concomitant]
  15. METOPROLOL [Concomitant]
  16. ATORVASTATIN [Concomitant]

REACTIONS (3)
  - BLOOD CREATINE PHOSPHOKINASE INCREASED [None]
  - BODY TEMPERATURE INCREASED [None]
  - NUCHAL RIGIDITY [None]
